FAERS Safety Report 5493692-X (Version None)
Quarter: 2007Q4

REPORT INFORMATION
  Report Type: 
  Country: None (occurrence: None)
  Receive Date: 20071023
  Receipt Date: 20071016
  Transmission Date: 20080405
  Serious: Yes (Other)
  Sender: FDA-Public Use
  Company Number: US-ASTRAZENECA-2007UW24165

PATIENT
  Age: 61 Year
  Sex: Female

DRUGS (7)
  1. PULMICORT FLEXHALER [Suspect]
     Route: 055
  2. PULMICORT RESPULES [Concomitant]
  3. ALBUTEROL [Concomitant]
  4. SODIUM CHLORIDE 0.9% [Concomitant]
     Route: 045
  5. ZYFLO [Concomitant]
  6. ASTELIN [Concomitant]
  7. ZANTAC [Concomitant]

REACTIONS (6)
  - COUGH [None]
  - DYSPNOEA [None]
  - INCREASED UPPER AIRWAY SECRETION [None]
  - INSOMNIA [None]
  - NASAL CONGESTION [None]
  - RESPIRATORY DISTRESS [None]
